FAERS Safety Report 6722758-9 (Version None)
Quarter: 2010Q2

REPORT INFORMATION
  Report Type: 
  Country: None (occurrence: None)
  Receive Date: 20100511
  Receipt Date: 20100430
  Transmission Date: 20101027
  Serious: Yes (Other)
  Sender: FDA-Public Use
  Company Number: 2010BN000026

PATIENT
  Age: 79 Year
  Sex: Male

DRUGS (4)
  1. MELPHALAN HYDROCHLORIDE [Suspect]
     Indication: MULTIPLE MYELOMA
     Dosage: 9 MG/M2
  2. BORTEZOMIB [Suspect]
     Indication: MULTIPLE MYELOMA
     Dosage: 1.3 MG/M2
  3. PREDNISOLONE [Concomitant]
  4. PREV MEDS [Concomitant]

REACTIONS (1)
  - ERYTHEMA MULTIFORME [None]
